FAERS Safety Report 25406429 (Version 2)
Quarter: 2025Q3

REPORT INFORMATION
  Report Type: Spontaneous
  Country: GB (occurrence: GB)
  Receive Date: 20250606
  Receipt Date: 20250731
  Transmission Date: 20251020
  Serious: Yes (Other)
  Sender: ROCHE
  Company Number: GB-ROCHE-10000304045

PATIENT
  Age: 96 Year
  Sex: Female

DRUGS (4)
  1. VABYSMO [Suspect]
     Active Substance: FARICIMAB-SVOA
     Indication: Neovascular age-related macular degeneration
     Dosage: SUSPECT MEDICATION ADMINISTERED BEFORE THE?EVENT WAS EXPERIENCED: 10 DAYS
     Route: 050
     Dates: start: 20250523
  2. LACIDIPINE [Concomitant]
     Active Substance: LACIDIPINE
  3. DIGOXIN [Concomitant]
     Active Substance: DIGOXIN
  4. EDOXABAN [Concomitant]
     Active Substance: EDOXABAN

REACTIONS (2)
  - Retinal vein occlusion [Recovering/Resolving]
  - Vitreous haemorrhage [Recovering/Resolving]

NARRATIVE: CASE EVENT DATE: 20250601
